FAERS Safety Report 5705231-6 (Version None)
Quarter: 2008Q2

REPORT INFORMATION
  Report Type: 
  Country: None (occurrence: None)
  Receive Date: 20080411
  Receipt Date: 20080331
  Transmission Date: 20081010
  Serious: Yes (Hospitalization)
  Sender: FDA-Public Use
  Company Number: 310296

PATIENT
  Age: 17 Year
  Sex: Female

DRUGS (2)
  1. CEPACOL MAXIMUM NUMBING SORE THROAT LOZENGES [Suspect]
     Indication: PHARYNGOLARYNGEAL PAIN
     Dosage: 1 LOZENGE 2TIMES ORALLY
     Route: 048
     Dates: start: 20080327
  2. KEFLEX [Concomitant]

REACTIONS (2)
  - DYSPNOEA [None]
  - PHARYNGEAL OEDEMA [None]
